FAERS Safety Report 9956366 (Version 2)
Quarter: 2014Q1

REPORT INFORMATION
  Report Type: Report from Study
  Country: US (occurrence: US)
  Receive Date: 20140304
  Receipt Date: 20140304
  Transmission Date: 20141002
  Serious: Yes (Hospitalization)
  Sender: FDA-Public Use
  Company Number: US-BRISTOL-MYERS SQUIBB COMPANY-19166271

PATIENT
  Age: 61 Year
  Sex: Female

DRUGS (7)
  1. BLINDED: IPILIMUMAB [Suspect]
     Indication: SMALL CELL LUNG CANCER
     Route: 042
     Dates: start: 20130703, end: 20130904
  2. CARBOPLATIN [Suspect]
     Indication: SMALL CELL LUNG CANCER
     Dosage: 16MAY-22JUL13-592MG
     Route: 042
     Dates: start: 20130516, end: 20130722
  3. ETOPOSIDE [Suspect]
     Indication: SMALL CELL LUNG CANCER
     Route: 042
     Dates: start: 20130516, end: 20130724
  4. BLINDED: PLACEBO [Suspect]
     Indication: SMALL CELL LUNG CANCER
     Route: 042
     Dates: start: 20130703, end: 20130904
  5. DEXAMETHASONE [Suspect]
     Route: 042
     Dates: start: 20130516, end: 20130722
  6. KYTRIL [Suspect]
     Route: 042
     Dates: start: 20130516, end: 20130724
  7. EMEND [Suspect]
     Route: 042
     Dates: start: 20130701, end: 20130814

REACTIONS (2)
  - Dyspnoea [Recovered/Resolved]
  - Urinary tract infection [Recovered/Resolved]
